FAERS Safety Report 8405108 (Version 3)
Quarter: 2012Q4

REPORT INFORMATION
  Report Type: 
  Country: US (occurrence: US)
  Receive Date: 20120214
  Receipt Date: 20121129
  Transmission Date: 20130627
  Serious: Yes (Death)
  Sender: FDA-Public Use
  Company Number: US-GLAXOSMITHKLINE-A0933805A

PATIENT
  Age: 66 Year
  Sex: Female
  Weight: 72.7 kg

DRUGS (5)
  1. AVANDIA [Suspect]
     Indication: DIABETES MELLITUS
     Dosage: 4MG Twice per day
     Route: 048
     Dates: start: 2000, end: 20080712
  2. PRINIVIL [Concomitant]
  3. GLYBURIDE [Concomitant]
  4. PREVACID [Concomitant]
  5. GLUCOPHAGE [Concomitant]

REACTIONS (4)
  - Cardiac failure congestive [Unknown]
  - Congestive cardiomyopathy [Unknown]
  - Arteriosclerosis [Fatal]
  - Hypertensive heart disease [Fatal]
